FAERS Safety Report 9374222 (Version 1)
Quarter: 2013Q2

REPORT INFORMATION
  Report Type: Spontaneous
  Country: US (occurrence: US)
  Receive Date: 20130628
  Receipt Date: 20130628
  Transmission Date: 20140414
  Serious: No
  Sender: FDA-Public Use
  Company Number: US-BIOGENIDEC-2013BI058195

PATIENT
  Age: 52 Year
  Sex: Female

DRUGS (4)
  1. AVONEX [Suspect]
     Indication: PRODUCT USED FOR UNKNOWN INDICATION
     Route: 030
  2. METHSCOPOLAMINE BROMIDE [Concomitant]
     Indication: PRODUCT USED FOR UNKNOWN INDICATION
  3. ONDANSETRON HCL [Concomitant]
     Indication: PRODUCT USED FOR UNKNOWN INDICATION
  4. ADVIL COLD/ SINUS [Concomitant]
     Indication: PRODUCT USED FOR UNKNOWN INDICATION

REACTIONS (5)
  - Urinary tract infection [Unknown]
  - Asthenia [Unknown]
  - Myalgia [Unknown]
  - Arthralgia [Unknown]
  - Insomnia [Unknown]
